FAERS Safety Report 5397230-1 (Version None)
Quarter: 2007Q3

REPORT INFORMATION
  Report Type: 
  Country: None (occurrence: None)
  Receive Date: 20070725
  Receipt Date: 20070716
  Transmission Date: 20080115
  Serious: Yes (Congenital Anomaly, Other)
  Sender: FDA-Public Use
  Company Number: US-PFIZER INC-2007058656

PATIENT
  Sex: Male
  Weight: 72.6 kg

DRUGS (1)
  1. DEPO-PROVERA SUSPENSION/INJ [Suspect]
     Dosage: FREQ:SINGLE INJECTION
     Route: 030
     Dates: start: 19700101, end: 19700101

REACTIONS (3)
  - CEPHALO-PELVIC DISPROPORTION [None]
  - CONGENITAL AORTIC VALVE STENOSIS [None]
  - DRUG EXPOSURE DURING PREGNANCY [None]
